FAERS Safety Report 4589586-4 (Version None)
Quarter: 2005Q1

REPORT INFORMATION
  Report Type: 
  Country: None (occurrence: None)
  Receive Date: 20050223
  Receipt Date: 20050126
  Transmission Date: 20050727
  Serious: Yes (Death, Hospitalization)
  Sender: FDA-Public Use
  Company Number: BE-MERCK-0501BEL00022

PATIENT
  Age: 91 Year
  Sex: Male
  Weight: 70 kg

DRUGS (12)
  1. ZOCOR [Suspect]
     Indication: HYPERCHOLESTEROLAEMIA
     Route: 048
     Dates: start: 20030601, end: 20041214
  2. INSULIN, BIPHASIC ISOPHANE [INJECTION] [Concomitant]
     Indication: DIABETES MELLITUS INSULIN-DEPENDENT
     Route: 058
  3. ALLOPURINOL [Concomitant]
     Indication: HYPERURICAEMIA
     Route: 048
  4. METOPROLOL TARTRATE [Concomitant]
     Route: 048
  5. BUMETANIDE [Concomitant]
     Route: 048
  6. CITALOPRAM HYDROBROMIDE [Concomitant]
     Indication: DEPRESSION
     Route: 048
  7. MOLSIDOMINE [Concomitant]
     Indication: ANGINA PECTORIS
     Route: 048
  8. CANDESARTAN CILEXETIL [Concomitant]
     Route: 048
  9. LORMETAZEPAM [Concomitant]
     Route: 048
  10. ALPRAZOLAM [Concomitant]
     Route: 048
  11. IRON (UNSPECIFIED) [Concomitant]
     Route: 065
  12. ASPIRIN [Concomitant]
     Route: 048

REACTIONS (10)
  - ANAEMIA [None]
  - ATRIOVENTRICULAR BLOCK FIRST DEGREE [None]
  - BLOOD CREATINE PHOSPHOKINASE INCREASED [None]
  - BUNDLE BRANCH BLOCK LEFT [None]
  - FALL [None]
  - HEPATIC ENZYME INCREASED [None]
  - MUSCULAR WEAKNESS [None]
  - RHABDOMYOLYSIS [None]
  - SUDDEN DEATH [None]
  - VENTRICULAR HYPERTROPHY [None]
